FAERS Safety Report 23668884 (Version 3)
Quarter: 2024Q2

REPORT INFORMATION
  Report Type: Report from Study
  Country: US (occurrence: US)
  Receive Date: 20240325
  Receipt Date: 20240514
  Transmission Date: 20240716
  Serious: Yes (Other)
  Sender: FDA-Public Use
  Company Number: US-UCBSA-2024014151

PATIENT
  Age: 5 Year
  Sex: Female

DRUGS (3)
  1. FINTEPLA [Suspect]
     Active Substance: FENFLURAMINE
     Indication: Lennox-Gastaut syndrome
     Dosage: 0.4 MILLILITER, 2X/DAY (BID)
     Dates: start: 20240313
  2. FINTEPLA [Suspect]
     Active Substance: FENFLURAMINE
     Dosage: 0.2 MILLILITER, 2X/DAY (BID)
     Dates: start: 2024
  3. FINTEPLA [Suspect]
     Active Substance: FENFLURAMINE
     Dosage: 0.2 MILLILITER, 2X/DAY (BID)
     Dates: start: 2024, end: 20240429

REACTIONS (11)
  - Change in seizure presentation [Unknown]
  - Seizure [Recovered/Resolved]
  - Irritability [Not Recovered/Not Resolved]
  - Confusional state [Not Recovered/Not Resolved]
  - Feeling abnormal [Not Recovered/Not Resolved]
  - Pyrexia [Unknown]
  - Nasal congestion [Unknown]
  - Middle ear effusion [Unknown]
  - Hypervigilance [Recovered/Resolved]
  - Hyperacusis [Recovered/Resolved]
  - Drug ineffective [Unknown]

NARRATIVE: CASE EVENT DATE: 20240301
